FAERS Safety Report 5463763-2 (Version None)
Quarter: 2007Q3

REPORT INFORMATION
  Report Type: 
  Country: None (occurrence: None)
  Receive Date: 20070920
  Receipt Date: 20070913
  Transmission Date: 20080115
  Serious: No
  Sender: FDA-Public Use
  Company Number: US-BOEHRINGER INGELHEIM PHARMACEUTICALS, INC.-2005-BP-21573BP

PATIENT
  Sex: Female

DRUGS (5)
  1. SPIRIVA [Suspect]
     Indication: ASTHMA
     Route: 055
     Dates: start: 20051015
  2. ATENOLOL [Concomitant]
     Indication: TACHYCARDIA
  3. IMIPRAMINE [Concomitant]
     Indication: DEPRESSION
  4. ADVAIR DISKUS 100/50 [Concomitant]
     Indication: ASTHMA
  5. SINGULAIR [Concomitant]
     Indication: ASTHMA

REACTIONS (1)
  - VAGINAL HAEMORRHAGE [None]
